FAERS Safety Report 12218547 (Version 3)
Quarter: 2016Q2

REPORT INFORMATION
  Report Type: Other
  Country: DK (occurrence: US)
  Receive Date: 20160329
  Receipt Date: 20160406
  Transmission Date: 20160815
  Serious: Yes (Death)
  Sender: FDA-Public Use
  Company Number: US-FRI-1000083528

PATIENT
  Age: 44 Year
  Sex: Female

DRUGS (8)
  1. DIVALPROEX (DEPAKOTE EXTENDED RELEASE [ER]) [Concomitant]
     Indication: MIGRAINE
     Route: 065
     Dates: start: 200907
  2. DIVALPROEX (DEPAKOTE EXTENDED RELEASE [ER]) [Concomitant]
     Route: 065
     Dates: start: 201101
  3. NADOLOL. [Concomitant]
     Active Substance: NADOLOL
     Indication: HYPERTENSION
     Route: 065
  4. BUPROPRION (WELLBUTRIN) [Concomitant]
     Indication: PRODUCT USED FOR UNKNOWN INDICATION
     Route: 065
     Dates: end: 201101
  5. DIVALPROEX (DEPAKOTE EXTENDED RELEASE [ER]) [Concomitant]
     Route: 065
     Dates: start: 2010
  6. MOBIC [Concomitant]
     Active Substance: MELOXICAM
     Indication: MIGRAINE
     Route: 065
     Dates: end: 201105
  7. CITALOPRAM [Suspect]
     Active Substance: CITALOPRAM HYDROBROMIDE
     Indication: DEPRESSION
     Route: 065
     Dates: end: 201101
  8. CITALOPRAM [Suspect]
     Active Substance: CITALOPRAM HYDROBROMIDE
     Dosage: PRESCRIBED OVERDOSE: 60 MG DAILY
     Route: 065
     Dates: start: 201101

REACTIONS (4)
  - Ventricular fibrillation [Fatal]
  - Long QT syndrome [Fatal]
  - Arrhythmia [Fatal]
  - Prescribed overdose [Fatal]

NARRATIVE: CASE EVENT DATE: 201105
